FAERS Safety Report 23800849 (Version 2)
Quarter: 2024Q2

REPORT INFORMATION
  Report Type: Report from Study
  Country: CA (occurrence: CA)
  Receive Date: 20240430
  Receipt Date: 20240430
  Transmission Date: 20240716
  Serious: Yes (Hospitalization, Other)
  Sender: FDA-Public Use
  Company Number: CA-HLS-202401084

PATIENT
  Sex: Male

DRUGS (3)
  1. Haladol LA [Concomitant]
     Indication: Product used for unknown indication
     Dosage: 4.2 ML
     Route: 030
  2. LOXITANE [Concomitant]
     Active Substance: LOXAPINE SUCCINATE
     Indication: Product used for unknown indication
     Dosage: 1-2 CO BID PRN(1-2 CAPSULES TWICE DAILY AS NEEDED)
     Route: 065
  3. CLOZARIL [Suspect]
     Active Substance: CLOZAPINE
     Indication: Product used for unknown indication
     Route: 065
     Dates: start: 20131126, end: 20131218

REACTIONS (3)
  - Schizophrenia [Unknown]
  - Cognitive disorder [Unknown]
  - Toxic encephalopathy [Unknown]
